FAERS Safety Report 7431027-3 (Version None)
Quarter: 2011Q2

REPORT INFORMATION
  Report Type: 
  Country: None (occurrence: None)
  Receive Date: 20110421
  Receipt Date: 20110404
  Transmission Date: 20111010
  Serious: No
  Sender: FDA-Public Use
  Company Number: US-B.I. PHARMACEUTICALS,INC./RIDGEFIELD-2011-BP-09969BP

PATIENT
  Sex: Male

DRUGS (10)
  1. FENOFIDINE [Concomitant]
     Dosage: 134 MCG
     Route: 048
  2. DOXAZOSIN MESYLATE [Concomitant]
     Dosage: 1 MG
     Route: 048
  3. LORAZEPAM [Concomitant]
     Indication: ANXIETY
     Route: 048
  4. OXYBUTYNIN [Concomitant]
     Dosage: 10 MG
     Route: 048
  5. CARVEDILOL [Concomitant]
     Dosage: 12.5 MG
     Route: 048
  6. SIMVASTATIN [Concomitant]
     Indication: BLOOD CHOLESTEROL INCREASED
     Dosage: 20 MG
     Route: 048
  7. DIGOXIN [Concomitant]
     Indication: HEART RATE INCREASED
     Dosage: 125 MCG
     Route: 048
     Dates: start: 20110402
  8. PRADAXA [Suspect]
     Indication: CEREBROVASCULAR ACCIDENT PROPHYLAXIS
     Dosage: 300 MG
     Route: 048
     Dates: start: 20110402
  9. PRADAXA [Suspect]
     Indication: HEART RATE INCREASED
  10. FAMOTIDINE [Concomitant]
     Dosage: 40 MG
     Route: 048

REACTIONS (4)
  - ABDOMINAL DISCOMFORT [None]
  - ABDOMINAL DISTENSION [None]
  - ERUCTATION [None]
  - DYSPEPSIA [None]
